FAERS Safety Report 6382703-5 (Version None)
Quarter: 2009Q3

REPORT INFORMATION
  Report Type: 
  Country: None (occurrence: None)
  Receive Date: 20090928
  Receipt Date: 20090928
  Transmission Date: 20100115
  Serious: No
  Sender: FDA-Public Use
  Company Number: None

PATIENT
  Age: 66 Year
  Sex: Female
  Weight: 63.9572 kg

DRUGS (1)
  1. SIMVASTATIN [Suspect]
     Indication: BLOOD CHOLESTEROL INCREASED
     Dosage: 1 TAB PER DAY AT NIGHT
     Dates: start: 20090814, end: 20090912

REACTIONS (4)
  - ARTHRALGIA [None]
  - CHEST PAIN [None]
  - MUSCLE DISORDER [None]
  - MYALGIA [None]
